FAERS Safety Report 25401681 (Version 1)
Quarter: 2025Q2

REPORT INFORMATION
  Report Type: Spontaneous
  Country: US (occurrence: None)
  Receive Date: 20250603
  Receipt Date: 20250603
  Transmission Date: 20250716
  Serious: Yes (Death)
  Sender: FDA-CTU
  Company Number: None

PATIENT
  Age: 86 Year
  Sex: Male
  Weight: 109 kg

DRUGS (1)
  1. APIXABAN [Suspect]
     Active Substance: APIXABAN
     Indication: Atrial fibrillation
     Dosage: FREQUENCY : TWICE A DAY;?
     Route: 048
     Dates: start: 20210319, end: 20250128

REACTIONS (4)
  - Cerebral infarction [None]
  - Cerebrovascular accident [None]
  - Dysphagia [None]
  - Treatment noncompliance [None]

NARRATIVE: CASE EVENT DATE: 20250115
